FAERS Safety Report 5768283-3 (Version None)
Quarter: 2008Q2

REPORT INFORMATION
  Report Type: 
  Country: None (occurrence: None)
  Receive Date: 20080612
  Receipt Date: 20080417
  Transmission Date: 20081010
  Serious: No
  Sender: FDA-Public Use
  Company Number: PR-ABBOTT-08P-131-0448405-00

PATIENT
  Age: 36 Year
  Sex: Female

DRUGS (9)
  1. HUMIRA [Suspect]
     Indication: SPONDYLITIS
     Route: 058
  2. LIOTHYRONINE SODIUM [Concomitant]
     Indication: THYROID DISORDER
     Route: 048
  3. TOPIRAMATE [Concomitant]
     Indication: THYROID DISORDER
     Route: 048
  4. METHOTREXATE [Concomitant]
     Indication: ARTHRITIS
     Dosage: WEEKLY
     Route: 048
  5. FOLIC ACID [Concomitant]
     Indication: ARTHRITIS
     Route: 048
  6. ULTRACET [Concomitant]
     Indication: PAIN
     Route: 048
  7. BENADRYL [Concomitant]
     Indication: HYPERSENSITIVITY
     Route: 048
  8. CETIRIZINE HYDROCHLORIDE [Concomitant]
     Indication: HYPERSENSITIVITY
     Route: 048
  9. SERETIDE [Concomitant]
     Indication: ASTHMA
     Route: 048

REACTIONS (3)
  - ASTHMA [None]
  - PRURITUS GENERALISED [None]
  - PYREXIA [None]
